FAERS Safety Report 7456403-4 (Version None)
Quarter: 2011Q2

REPORT INFORMATION
  Report Type: 
  Country: None (occurrence: None)
  Receive Date: 20110426
  Receipt Date: 20110412
  Transmission Date: 20111010
  Serious: Yes (Hospitalization)
  Sender: FDA-Public Use
  Company Number: 2011S1000452

PATIENT
  Age: 57 Year
  Sex: Female

DRUGS (4)
  1. COZAAR [Concomitant]
  2. THIOCTIC [Concomitant]
  3. METFORMIN HCL [Concomitant]
  4. LIVALO [Suspect]
     Indication: HYPERLIPIDAEMIA
     Dosage: 2 MG;1X;PO
     Route: 048
     Dates: start: 20110217, end: 20110302

REACTIONS (4)
  - FALL [None]
  - ROTATOR CUFF SYNDROME [None]
  - MUSCULOSKELETAL PAIN [None]
  - MUSCLE INJURY [None]
